FAERS Safety Report 21896041 (Version 3)
Quarter: 2023Q2

REPORT INFORMATION
  Report Type: Spontaneous
  Country: GB (occurrence: GB)
  Receive Date: 20230123
  Receipt Date: 20230608
  Transmission Date: 20230721
  Serious: Yes (Life-Threatening, Hospitalization, Other)
  Sender: FDA-Public Use
  Company Number: GB-MLMSERVICE-20230106-4026913-1

PATIENT
  Age: 3 Decade
  Sex: Male

DRUGS (1)
  1. CIPROFLOXACIN [Suspect]
     Active Substance: CIPROFLOXACIN
     Indication: Gastrointestinal bacterial overgrowth
     Dosage: UNK
     Route: 065

REACTIONS (10)
  - Pericardial haemorrhage [Recovered/Resolved]
  - Pericardial effusion [Recovered/Resolved]
  - Hypogammaglobulinaemia [Not Recovered/Not Resolved]
  - Condition aggravated [Recovered/Resolved]
  - Left ventricular failure [Recovered/Resolved]
  - Haemodynamic instability [Recovered/Resolved]
  - Right ventricle outflow tract obstruction [Recovered/Resolved]
  - Cardiac tamponade [Recovered/Resolved]
  - Deep vein thrombosis [Recovered/Resolved]
  - Vitamin K deficiency [Recovered/Resolved]
